FAERS Safety Report 7029077-4 (Version None)
Quarter: 2010Q4

REPORT INFORMATION
  Report Type: 
  Country: None (occurrence: None)
  Receive Date: 20101005
  Receipt Date: 20100927
  Transmission Date: 20110411
  Serious: Yes (Life-Threatening)
  Sender: FDA-Public Use
  Company Number: B0676297A

PATIENT
  Age: 53 Year
  Sex: Female
  Weight: 82.5 kg

DRUGS (6)
  1. AVANDAMET [Suspect]
     Dosage: 2IUAX PER DAY
     Route: 048
     Dates: start: 20050518, end: 20100916
  2. AMOXICILLIN [Concomitant]
  3. ATORVASTATIN [Concomitant]
  4. VALSARTAN [Concomitant]
  5. GLICLAZIDE [Concomitant]
  6. RABEPRAZOLE SODIUM [Concomitant]

REACTIONS (1)
  - ACUTE MYOCARDIAL INFARCTION [None]
